FAERS Safety Report 6515928-6 (Version None)
Quarter: 2009Q4

REPORT INFORMATION
  Report Type: 
  Country: None (occurrence: None)
  Receive Date: 20091211
  Receipt Date: 20090312
  Transmission Date: 20100525
  Serious: Yes (Other)
  Sender: FDA-Public Use
  Company Number: SPV1-2009-00437

PATIENT
  Age: 15 Year
  Sex: Male
  Weight: 61.2 kg

DRUGS (2)
  1. ADDERALL XR 10 [Suspect]
     Indication: ATTENTION DEFICIT/HYPERACTIVITY DISORDER
     Dosage: 15 MG, 1X/DAY: QD, ORAL; 10 MG, 1X/DAY: QD, ORAL
     Route: 048
     Dates: start: 20060101, end: 20070101
  2. ADDERALL XR 10 [Suspect]
     Indication: ATTENTION DEFICIT/HYPERACTIVITY DISORDER
     Dosage: 15 MG, 1X/DAY: QD, ORAL; 10 MG, 1X/DAY: QD, ORAL
     Route: 048
     Dates: start: 20070101, end: 20090310

REACTIONS (2)
  - ARTERIOSPASM CORONARY [None]
  - LABORATORY TEST ABNORMAL [None]
